FAERS Safety Report 9226128 (Version 1)
Quarter: 2013Q2

REPORT INFORMATION
  Report Type: Spontaneous
  Country: US (occurrence: US)
  Receive Date: 20130411
  Receipt Date: 20130411
  Transmission Date: 20140414
  Serious: Yes (Hospitalization)
  Sender: FDA-Public Use
  Company Number: US-009507513-1304USA003689

PATIENT
  Age: 81 Year
  Sex: Male

DRUGS (2)
  1. SAPHRIS [Suspect]
     Indication: BIPOLAR I DISORDER
     Dosage: 10 MG, BID
     Route: 060
     Dates: start: 20130310, end: 20130331
  2. SAPHRIS [Suspect]
     Dosage: 5 MG TABLET RAPID DISSOLVE, BID
     Route: 060

REACTIONS (2)
  - Hospitalisation [Unknown]
  - Ventricular tachycardia [Unknown]
